FAERS Safety Report 15951507 (Version 2)
Quarter: 2019Q1

REPORT INFORMATION
  Report Type: Spontaneous
  Country: US (occurrence: US)
  Receive Date: 20190211
  Receipt Date: 20190213
  Transmission Date: 20190417
  Serious: Yes (Hospitalization)
  Sender: FDA-Public Use
  Company Number: US-PFIZER INC-2019050964

PATIENT
  Age: 83 Year
  Sex: Female

DRUGS (1)
  1. ADVIL [Suspect]
     Active Substance: IBUPROFEN
     Indication: BACK PAIN
     Dosage: 3 DF, 3X/DAY

REACTIONS (4)
  - Incorrect product administration duration [Unknown]
  - Pain [Unknown]
  - Hypertension [Unknown]
  - Dizziness [Unknown]
